FAERS Safety Report 19242080 (Version 2)
Quarter: 2021Q2

REPORT INFORMATION
  Report Type: Spontaneous
  Country: US (occurrence: US)
  Receive Date: 20210510
  Receipt Date: 20210520
  Transmission Date: 20210717
  Serious: Yes (Hospitalization)
  Sender: FDA-Public Use
  Company Number: US-TEVA-2021-US-1908984

PATIENT
  Sex: Male

DRUGS (2)
  1. TREPROSTINIL MDV TEVA [Suspect]
     Active Substance: TREPROSTINIL
     Dosage: DOSE OR AMOUNT :2NG/KG/MIN
     Route: 042
     Dates: start: 20190805
  2. TREPROSTINIL MDV TEVA [Suspect]
     Active Substance: TREPROSTINIL
     Indication: PULMONARY ARTERIAL HYPERTENSION
     Dosage: DOSE OR AMOUNT :2NG/KG/MIN
     Route: 042
     Dates: start: 202007

REACTIONS (3)
  - Norovirus infection [Unknown]
  - Hospitalisation [Unknown]
  - Short-bowel syndrome [Unknown]
